FAERS Safety Report 10483703 (Version 2)
Quarter: 2015Q2

REPORT INFORMATION
  Report Type: Spontaneous
  Country: FR (occurrence: None)
  Receive Date: 20140926
  Receipt Date: 20150430
  Transmission Date: 20150821
  Serious: Yes (Life-Threatening)
  Sender: FDA-Public Use
  Company Number: FR-20140313

PATIENT
  Age: 38 Year
  Sex: Male

DRUGS (1)
  1. HEXABRIX [Suspect]
     Active Substance: IOXAGLATE MEGLUMINE\IOXAGLATE SODIUM
     Indication: ARTERIOGRAM CORONARY
     Dosage: UNK (1 IN 1 D), INTRAVENOUS (NOT OTHERWISE SPECIFIED)?
     Route: 042
     Dates: start: 20140820, end: 20140820

REACTIONS (3)
  - Anaphylactic shock [None]
  - Face oedema [None]
  - Dermatitis exfoliative [None]

NARRATIVE: CASE EVENT DATE: 20140820
